FAERS Safety Report 14521139 (Version 1)
Quarter: 2018Q1

REPORT INFORMATION
  Report Type: Spontaneous
  Country: FR (occurrence: FR)
  Receive Date: 20180212
  Receipt Date: 20180212
  Transmission Date: 20180509
  Serious: Yes (Other)
  Sender: FDA-Public Use
  Company Number: FR-TEVA-2018-FR-856117

PATIENT

DRUGS (1)
  1. AMOXICILLINE TEVA [Suspect]
     Active Substance: AMOXICILLIN
     Route: 065

REACTIONS (3)
  - Vomiting [Unknown]
  - Hypersensitivity [Unknown]
  - Angioedema [Unknown]

NARRATIVE: CASE EVENT DATE: 201801
